FAERS Safety Report 24608475 (Version 1)
Quarter: 2024Q4

REPORT INFORMATION
  Report Type: Report from Study
  Country: US (occurrence: US)
  Receive Date: 20241112
  Receipt Date: 20241112
  Transmission Date: 20250115
  Serious: Yes (Other)
  Sender: EMD SERONO INC
  Company Number: US-Merck Healthcare KGaA-2024054139

PATIENT
  Age: 66 Year
  Sex: Female

DRUGS (1)
  1. MAVENCLAD [Suspect]
     Active Substance: CLADRIBINE
     Indication: Multiple sclerosis
     Dosage: YEAR ONE MONTH ONE THERAPY: 20 MG ON DAY 1 AND 10 MG ON DAYS 2 TO 5.
     Route: 048
     Dates: start: 202406

REACTIONS (6)
  - Immunodeficiency [Unknown]
  - Gait inability [Unknown]
  - Anal incontinence [Not Recovered/Not Resolved]
  - Urinary incontinence [Not Recovered/Not Resolved]
  - Hip arthroplasty [Unknown]
  - Memory impairment [Unknown]
